FAERS Safety Report 17853782 (Version 1)
Quarter: 2020Q2

REPORT INFORMATION
  Report Type: Spontaneous
  Country: US (occurrence: US)
  Receive Date: 20200602
  Receipt Date: 20200602
  Transmission Date: 20200714
  Serious: No
  Sender: FDA-Public Use
  Company Number: US-TEIKOKU PHARMA USA-TPU2020-00236

PATIENT
  Sex: Female
  Weight: 127.12 kg

DRUGS (2)
  1. LIDOCAINE PATCH [Suspect]
     Active Substance: LIDOCAINE
     Indication: ARTHRALGIA
     Dosage: BOTH KNEES
     Route: 061
     Dates: start: 2010
  2. LIDOCAINE PATCH [Suspect]
     Active Substance: LIDOCAINE
     Dosage: LOWER BACK
     Route: 061
     Dates: start: 202004

REACTIONS (2)
  - Inability to afford medication [Unknown]
  - Expired product administered [Unknown]
